FAERS Safety Report 6441112-0 (Version None)
Quarter: 2009Q4

REPORT INFORMATION
  Report Type: 
  Country: None (occurrence: None)
  Receive Date: 20091116
  Receipt Date: 20091112
  Transmission Date: 20100525
  Serious: Yes (Death)
  Sender: FDA-Public Use
  Company Number: AU-ROCHE-668402

PATIENT
  Sex: Male

DRUGS (7)
  1. CLONAZEPAM [Suspect]
     Indication: DRUG USE FOR UNKNOWN INDICATION
     Route: 065
  2. CLOZAPINE [Suspect]
     Indication: DRUG USE FOR UNKNOWN INDICATION
     Dosage: DRUG NAME: CLOPINE
     Route: 048
     Dates: start: 20090709
  3. CLOZAPINE [Suspect]
     Dosage: DRUG NAME: CLOPINE
     Route: 048
     Dates: end: 20090912
  4. SEROQUEL [Suspect]
     Indication: DRUG USE FOR UNKNOWN INDICATION
     Route: 065
  5. DULOXETINE HYDROCHLORIDE [Concomitant]
  6. MIRTAZAPINE [Concomitant]
  7. ROSUVASTATIN [Concomitant]

REACTIONS (1)
  - DEATH [None]
